FAERS Safety Report 7287254-1 (Version None)
Quarter: 2011Q1

REPORT INFORMATION
  Report Type: 
  Country: None (occurrence: None)
  Receive Date: 20110211
  Receipt Date: 20110207
  Transmission Date: 20110831
  Serious: Yes (Other)
  Sender: FDA-Public Use
  Company Number: US-BAYER-2011-013285

PATIENT
  Sex: Female

DRUGS (3)
  1. YASMIN [Suspect]
     Dosage: UNK
     Dates: start: 20060701
  2. YAZ [Suspect]
     Dosage: UNK
     Dates: start: 20060701
  3. OCELLA [Suspect]
     Dosage: UNK
     Dates: start: 20060701

REACTIONS (2)
  - PAIN [None]
  - DEEP VEIN THROMBOSIS [None]
